FAERS Safety Report 10230380 (Version 1)
Quarter: 2014Q2

REPORT INFORMATION
  Report Type: Spontaneous
  Country: US (occurrence: US)
  Receive Date: 20140611
  Receipt Date: 20140611
  Transmission Date: 20141212
  Serious: Yes (Other)
  Sender: FDA-Public Use
  Company Number: US-INCYTE CORPORATION-2014IN000446

PATIENT
  Age: 85 Year
  Sex: Male

DRUGS (3)
  1. JAKAFI [Suspect]
     Indication: MYELOFIBROSIS
     Dosage: NOT SPECIFIED
     Route: 048
  2. JAKAFI [Suspect]
     Dosage: 5 MG, QOD
     Route: 048
     Dates: start: 20131213
  3. PROCRIT                            /00909301/ [Concomitant]
     Dosage: 40000 UT, EVERY WEEK
     Route: 065

REACTIONS (1)
  - Haemoglobin decreased [Unknown]
